FAERS Safety Report 19498405 (Version 3)
Quarter: 2021Q4

REPORT INFORMATION
  Report Type: Spontaneous
  Country: US (occurrence: US)
  Receive Date: 20210706
  Receipt Date: 20211103
  Transmission Date: 20220303
  Serious: No
  Sender: FDA-Public Use
  Company Number: US-SA-SAC20210705000188

PATIENT
  Sex: Female

DRUGS (19)
  1. KEVZARA [Suspect]
     Active Substance: SARILUMAB
     Indication: Rheumatoid arthritis
     Dosage: 200 MG, QOW
     Route: 058
  2. KEVZARA [Suspect]
     Active Substance: SARILUMAB
     Indication: Multiple sclerosis
  3. CYCLOBENZAPRINE HYDROCHLORIDE [Concomitant]
     Active Substance: CYCLOBENZAPRINE HYDROCHLORIDE
  4. FOLIC ACID [Concomitant]
     Active Substance: FOLIC ACID
  5. FOLIC ACID [Concomitant]
     Active Substance: FOLIC ACID
  6. MEDROL [Concomitant]
     Active Substance: METHYLPREDNISOLONE
  7. MEDROL [Concomitant]
     Active Substance: METHYLPREDNISOLONE
  8. NARCAN [Concomitant]
     Active Substance: NALOXONE HYDROCHLORIDE
  9. NITROGLYCERIN [Concomitant]
     Active Substance: NITROGLYCERIN
  10. NITROGLYCERIN [Concomitant]
     Active Substance: NITROGLYCERIN
  11. VENTOLIN HFA [Concomitant]
     Active Substance: ALBUTEROL SULFATE
  12. DILTIAZEM [Concomitant]
     Active Substance: DILTIAZEM
  13. CEFIXIME [Concomitant]
     Active Substance: CEFIXIME
  14. ALBUTEROL SULFATE [Concomitant]
     Active Substance: ALBUTEROL SULFATE
  15. LONHALA MAGNAIR [Concomitant]
     Active Substance: GLYCOPYRROLATE
  16. LONHALA MAGNAIR [Concomitant]
     Active Substance: GLYCOPYRROLATE
  17. PERCOCET [Concomitant]
     Active Substance: ACETAMINOPHEN\OXYCODONE HYDROCHLORIDE
  18. PERCOCET [Concomitant]
     Active Substance: ACETAMINOPHEN\OXYCODONE HYDROCHLORIDE
  19. AZITHROMYCIN [Concomitant]
     Active Substance: AZITHROMYCIN

REACTIONS (6)
  - Injection site reaction [Unknown]
  - Injection site pruritus [Unknown]
  - Injection site rash [Unknown]
  - Lack of injection site rotation [Unknown]
  - Unevaluable event [Unknown]
  - Product use in unapproved indication [Unknown]
